FAERS Safety Report 4394451-1 (Version None)
Quarter: 2004Q3

REPORT INFORMATION
  Report Type: 
  Country: None (occurrence: None)
  Receive Date: 20040709
  Receipt Date: 20040709
  Transmission Date: 20050211
  Serious: Yes (Life-Threatening)
  Sender: FDA-Public Use
  Company Number: None

PATIENT
  Age: 51 Year
  Sex: Male
  Weight: 79.3795 kg

DRUGS (8)
  1. BAYER ASPIRIN EC 81 MG [Suspect]
     Dosage: ONE DAILY
     Dates: start: 20040601, end: 20040701
  2. MOBIC [Suspect]
     Indication: BACK PAIN
     Dosage: TWO ONCE DAILY
     Dates: start: 20040701
  3. ATENOLOL [Concomitant]
  4. HYDROCHLOROTHIAZIDE [Concomitant]
  5. LISINOPRIL [Concomitant]
  6. LIPITOR [Concomitant]
  7. DOXEPIN HCL [Concomitant]
  8. LORAZEPAM [Concomitant]

REACTIONS (3)
  - FAECES DISCOLOURED [None]
  - FLATULENCE [None]
  - HAEMATOCHEZIA [None]
